FAERS Safety Report 23712535 (Version 2)
Quarter: 2024Q2

REPORT INFORMATION
  Report Type: Spontaneous
  Country: GB (occurrence: GB)
  Receive Date: 20240405
  Receipt Date: 20240415
  Transmission Date: 20240716
  Serious: Yes (Hospitalization)
  Sender: FDA-Public Use
  Company Number: GB-MYLANLABS-2024M1030626

PATIENT
  Sex: Female

DRUGS (1)
  1. CLOZARIL [Suspect]
     Active Substance: CLOZAPINE
     Indication: Schizophrenia
     Dosage: 250 MILLIGRAM, QD (250MG/ DAY IN DIVIDED DOSESS)
     Route: 048
     Dates: start: 20230908

REACTIONS (2)
  - Hospitalisation [Not Recovered/Not Resolved]
  - Heart rate increased [Unknown]
